FAERS Safety Report 4777921-3 (Version None)
Quarter: 2005Q3

REPORT INFORMATION
  Report Type: 
  Country: None (occurrence: None)
  Receive Date: 20050921
  Receipt Date: 20050908
  Transmission Date: 20060218
  Serious: Yes (Other)
  Sender: FDA-Public Use
  Company Number: 12153

PATIENT
  Age: 69 Year
  Sex: Female
  Weight: 45 kg

DRUGS (4)
  1. METHOTREXATE [Suspect]
     Indication: RENAL NEOPLASM
     Dates: start: 20010730
  2. VINBLASTINE [Suspect]
     Indication: RENAL NEOPLASM
     Dates: start: 20010730
  3. DOXORUBICIN HCL [Suspect]
     Indication: RENAL NEOPLASM
     Dates: start: 20010730
  4. CISPLATIN [Suspect]
     Indication: RENAL NEOPLASM
     Dates: start: 20010730

REACTIONS (18)
  - ANURIA [None]
  - BACK PAIN [None]
  - BONE NEOPLASM [None]
  - CATHETER RELATED INFECTION [None]
  - CATHETER SITE ERYTHEMA [None]
  - CATHETER SITE PAIN [None]
  - CULTURE THROAT POSITIVE [None]
  - EYE ROLLING [None]
  - HYPOAESTHESIA [None]
  - INFECTIVE SPONDYLITIS [None]
  - METASTASES TO BONE [None]
  - METASTASES TO LIVER [None]
  - METASTASES TO LUNG [None]
  - METASTASES TO LYMPH NODES [None]
  - MUSCLE RIGIDITY [None]
  - SENSORY DISTURBANCE [None]
  - SPINAL DEFORMITY [None]
  - STAPHYLOCOCCAL INFECTION [None]
